FAERS Safety Report 6073385-0 (Version None)
Quarter: 2009Q1

REPORT INFORMATION
  Report Type: 
  Country: None (occurrence: None)
  Receive Date: 20090205
  Receipt Date: 20090128
  Transmission Date: 20090719
  Serious: Yes (Hospitalization)
  Sender: FDA-Public Use
  Company Number: CIP09000081

PATIENT
  Age: 78 Year
  Sex: Female

DRUGS (13)
  1. ACTONEL [Suspect]
     Dosage: 35 MG ONCE WEEKLY, ORAL
     Route: 048
     Dates: start: 20081101, end: 20081202
  2. ASPIRIN [Concomitant]
  3. CLOPIDOGREL [Concomitant]
  4. DURIDE (ISOSORBIDE MONONITRATE) [Concomitant]
  5. ISOPTIN [Concomitant]
  6. SIMVASTATIN [Concomitant]
  7. METFORMIN HCL [Concomitant]
  8. MOTILIUM (LOPERAMIDE HYDROCHLORIDE) [Concomitant]
  9. NITROLINGUAL-SPRAY (GLYCERYL TRINITRATE) SPRAY [Concomitant]
  10. PANAMAX (PARACETAMOL) [Concomitant]
  11. PERINDOPRIL ERBUMINE [Concomitant]
  12. POLY-TEARS (DEXTRAN 70, HYPROMELLOSE) [Concomitant]
  13. LANSOPRAZOLE [Concomitant]

REACTIONS (5)
  - ACUTE CORONARY SYNDROME [None]
  - ACUTE MYOCARDIAL INFARCTION [None]
  - ATRIAL FLUTTER [None]
  - HYPONATRAEMIA [None]
  - PYELONEPHRITIS [None]
